FAERS Safety Report 6502542-1 (Version None)
Quarter: 2009Q4

REPORT INFORMATION
  Report Type: 
  Country: None (occurrence: None)
  Receive Date: 20091217
  Receipt Date: 20091209
  Transmission Date: 20100525
  Serious: Yes (Hospitalization)
  Sender: FDA-Public Use
  Company Number: US-BIOGENIDEC-2009BI040595

PATIENT
  Age: 68 Year
  Sex: Female

DRUGS (1)
  1. AVONEX [Suspect]
     Indication: MULTIPLE SCLEROSIS
     Route: 030
     Dates: start: 20010922

REACTIONS (6)
  - ASPIRATION [None]
  - BRONCHITIS [None]
  - CLONUS [None]
  - CYSTITIS [None]
  - RESPIRATORY DISORDER [None]
  - THYROID MASS [None]
